FAERS Safety Report 8807904 (Version 1)
Quarter: 2012Q4

REPORT INFORMATION
  Report Type: 
  Country: CN (occurrence: CN)
  Receive Date: 20120925
  Receipt Date: 20120925
  Transmission Date: 20130627
  Serious: Yes (Other)
  Sender: FDA-Public Use
  Company Number: CN-ROCHE-1127919

PATIENT
  Age: 5 Year
  Sex: Male
  Weight: 33 kg

DRUGS (1)
  1. ROCEPHIN [Suspect]
     Indication: UPPER RESPIRATORY TRACT INFECTION
     Route: 041
     Dates: start: 20090603, end: 20090603

REACTIONS (1)
  - Angioedema [Recovering/Resolving]
